FAERS Safety Report 8621989-0 (Version None)
Quarter: 2012Q3

REPORT INFORMATION
  Report Type: 
  Country: None (occurrence: None)
  Receive Date: 20120823
  Receipt Date: 20120823
  Transmission Date: 20120928
  Serious: Yes (Other)
  Sender: FDA-Public Use
  Company Number: None

PATIENT
  Age: 26 Year
  Sex: Female
  Weight: 84.369 kg

DRUGS (2)
  1. AMITRIPTYLINE HCL [Suspect]
     Indication: HEADACHE
     Dates: start: 20120320, end: 20120417
  2. AMITRIPTYLINE HCL [Suspect]
     Indication: HEADACHE
     Dates: start: 20101128, end: 20110503

REACTIONS (2)
  - VAGINAL HAEMORRHAGE [None]
  - ABDOMINAL DISTENSION [None]
